FAERS Safety Report 6392878-X (Version None)
Quarter: 2009Q4

REPORT INFORMATION
  Report Type: 
  Country: None (occurrence: None)
  Receive Date: 20091007
  Receipt Date: 20090910
  Transmission Date: 20100525
  Serious: No
  Sender: FDA-Public Use
  Company Number: US-ALLERGAN-0912617US

PATIENT
  Sex: Female

DRUGS (2)
  1. LATISSE [Suspect]
     Indication: HYPOTRICHOSIS
     Dosage: UNK
     Route: 061
     Dates: start: 20090816, end: 20090905
  2. LIPITOR [Concomitant]

REACTIONS (3)
  - BURNING SENSATION [None]
  - PRURITUS GENERALISED [None]
  - URTICARIA [None]
